FAERS Safety Report 7708512-X (Version None)
Quarter: 2011Q3

REPORT INFORMATION
  Report Type: 
  Country: None (occurrence: None)
  Receive Date: 20110819
  Receipt Date: 20110809
  Transmission Date: 20111222
  Serious: Yes (Hospitalization, Other)
  Sender: FDA-Public Use
  Company Number: US-001900

PATIENT
  Sex: Male
  Weight: 105.6881 kg

DRUGS (6)
  1. CELEXA [Concomitant]
  2. BENADRYL [Concomitant]
  3. NAGLAZYME [Suspect]
     Indication: MUCOPOLYSACCHARIDOSIS VI
     Dosage: (100 MG 1X/WEEK INTRAVENOUS DRIP)
     Route: 041
     Dates: start: 20091026
  4. NEXIUM [Concomitant]
  5. ANTIHISTAMINES [Concomitant]
  6. MS CONTIN [Concomitant]

REACTIONS (2)
  - SPINAL CORD COMPRESSION [None]
  - SPINAL OSTEOARTHRITIS [None]
